FAERS Safety Report 10073409 (Version 1)
Quarter: 2014Q2

REPORT INFORMATION
  Report Type: Spontaneous
  Country: US (occurrence: US)
  Receive Date: 20140411
  Receipt Date: 20140411
  Transmission Date: 20141212
  Serious: Yes (Hospitalization)
  Sender: FDA-Public Use
  Company Number: US-BRISTOL-MYERS SQUIBB COMPANY-20593778

PATIENT
  Age: 71 Year
  Sex: Male

DRUGS (1)
  1. BARACLUDE TABS 1.0 MG [Suspect]

REACTIONS (1)
  - Hernia [Unknown]
